FAERS Safety Report 5379051-9 (Version None)
Quarter: 2007Q3

REPORT INFORMATION
  Report Type: 
  Country: None (occurrence: None)
  Receive Date: 20070705
  Receipt Date: 20070613
  Transmission Date: 20080115
  Serious: Yes (Hospitalization)
  Sender: FDA-Public Use
  Company Number: SI-ROCHE-493700

PATIENT
  Age: 72 Year
  Sex: Female
  Weight: 63 kg

DRUGS (11)
  1. BONIVA [Suspect]
     Route: 042
     Dates: start: 20070207, end: 20070207
  2. CRESTOR [Concomitant]
     Dosage: FORMULATION REPORTED AS ^FCT^
  3. CORYOL [Concomitant]
  4. CHOLECALCIFEROL [Concomitant]
     Dosage: DRUG TRADE NAME REPORTED AS ^PLIVIT D3^
  5. MEDROL [Concomitant]
  6. PERINDOPRIL [Concomitant]
     Dosage: DRUG TRADE NAME REPORTED AS ^PREXANIL^
  7. PARACETAMOL [Concomitant]
     Dosage: DRUG TRADE NAME REPORTED AS ^LEKADOL^
  8. ZOLPIDEM TARTRATE [Concomitant]
     Dosage: DRUG TRADE NAME REPORTED AS ^SANVAL^
  9. ORTANOL [Concomitant]
  10. NITRO-DUR [Concomitant]
     Dosage: STRENGTH REPORTED AS 0.4MG/H
     Route: 062
  11. CALCIUM CHLORIDE [Concomitant]

REACTIONS (1)
  - GASTROINTESTINAL HAEMORRHAGE [None]
